FAERS Safety Report 20580600 (Version 2)
Quarter: 2022Q1

REPORT INFORMATION
  Report Type: Spontaneous
  Country: CN (occurrence: CN)
  Receive Date: 20220311
  Receipt Date: 20220322
  Transmission Date: 20220423
  Serious: Yes (Other)
  Sender: FDA-Public Use
  Company Number: CN-BoehringerIngelheim-2022-BI-157593

PATIENT
  Age: 67 Year
  Sex: Female

DRUGS (2)
  1. AFATINIB [Suspect]
     Active Substance: AFATINIB
     Indication: Squamous cell carcinoma of lung
     Dates: start: 20200429
  2. AFATINIB [Suspect]
     Active Substance: AFATINIB
     Indication: Gene mutation

REACTIONS (3)
  - Squamous cell carcinoma of lung [Unknown]
  - Metastases to central nervous system [Unknown]
  - Therapy partial responder [Unknown]

NARRATIVE: CASE EVENT DATE: 20210301
